FAERS Safety Report 6685129-X (Version None)
Quarter: 2010Q2

REPORT INFORMATION
  Report Type: 
  Country: None (occurrence: None)
  Receive Date: 20100416
  Receipt Date: 20091118
  Transmission Date: 20101027
  Serious: No
  Sender: FDA-Public Use
  Company Number: US-BRISTOL-MYERS SQUIBB COMPANY-14864367

PATIENT
  Age: 68 Year
  Sex: Female
  Weight: 83 kg

DRUGS (3)
  1. CARBOPLATIN [Suspect]
     Route: 065
     Dates: start: 20090101
  2. TAXOTERE [Suspect]
     Indication: BREAST CANCER
     Route: 051
     Dates: start: 20090101
  3. HERCEPTIN [Suspect]
     Route: 065
     Dates: start: 20090101

REACTIONS (1)
  - ALOPECIA TOTALIS [None]
